FAERS Safety Report 9917195 (Version 3)
Quarter: 2014Q1

REPORT INFORMATION
  Report Type: Spontaneous
  Country: US (occurrence: US)
  Receive Date: 20140221
  Receipt Date: 20140225
  Transmission Date: 20141002
  Serious: Yes (Hospitalization, Other)
  Sender: FDA-Public Use
  Company Number: US-PFIZER INC-2014044842

PATIENT
  Age: 15 Year
  Sex: Male

DRUGS (2)
  1. IBUPROFEN [Suspect]
     Indication: MUSCLE STRAIN
     Dosage: 1000 MG, THREE TO FOUR TIMES A DAY
  2. IBUPROFEN [Suspect]
     Indication: MUSCULOSKELETAL DISCOMFORT

REACTIONS (8)
  - Overdose [Recovered/Resolved]
  - Drug abuse [Recovered/Resolved]
  - Liver abscess [Recovered/Resolved]
  - Gastric ulcer [Recovered/Resolved]
  - Abdominal pain [Recovered/Resolved]
  - Fatigue [Recovered/Resolved]
  - Decreased appetite [Recovered/Resolved]
  - Weight decreased [Recovered/Resolved]
